FAERS Safety Report 14249279 (Version 2)
Quarter: 2017Q4

REPORT INFORMATION
  Report Type: Report from Study
  Country: CA (occurrence: CA)
  Receive Date: 20171204
  Receipt Date: 20171229
  Transmission Date: 20180321
  Serious: Yes (Hospitalization)
  Sender: FDA-Public Use
  Company Number: CA-HLSUS-2017-CA-001235

PATIENT
  Age: 52 Year
  Sex: Male

DRUGS (3)
  1. METOPROLOL. [Concomitant]
     Active Substance: METOPROLOL
     Indication: HYPERTENSION
     Dosage: 12.5MG TWICE DAILY
     Dates: start: 20171120, end: 20171121
  2. FLUVOXAMINE [Concomitant]
     Active Substance: FLUVOXAMINE
     Dosage: 12.5MG BED TIME
     Route: 048
     Dates: start: 20171114, end: 20171121
  3. CLOZARIL [Suspect]
     Active Substance: CLOZAPINE
     Dosage: 12.5 MG BED TIME
     Route: 048
     Dates: start: 20171027, end: 20171031

REACTIONS (8)
  - Hypoxia [Unknown]
  - C-reactive protein increased [Unknown]
  - Chest discomfort [Unknown]
  - White blood cell count increased [Unknown]
  - Dyspnoea [Unknown]
  - Neutrophil count increased [Unknown]
  - Bronchospasm [Unknown]
  - Troponin increased [Unknown]

NARRATIVE: CASE EVENT DATE: 20171123
